FAERS Safety Report 6097948-1 (Version None)
Quarter: 2009Q1

REPORT INFORMATION
  Report Type: 
  Country: None (occurrence: None)
  Receive Date: 20090227
  Receipt Date: 20090219
  Transmission Date: 20090719
  Serious: Yes (Other)
  Sender: FDA-Public Use
  Company Number: US-GENENTECH-275979

PATIENT
  Age: 35 Year
  Sex: Female

DRUGS (33)
  1. RITUXAN [Suspect]
     Indication: SYSTEMIC LUPUS ERYTHEMATOSUS
     Dosage: 375 MG/M2, UNK
     Route: 042
     Dates: start: 20060211
  2. RITUXAN [Suspect]
     Dosage: 750 MG/M2, UNK
     Route: 042
     Dates: start: 20060307
  3. DIPHENHYDRAMINE HCL [Concomitant]
     Indication: DRUG USE FOR UNKNOWN INDICATION
     Dosage: 50 MG, UNK
     Dates: start: 20060211
  4. METHYLPREDNISOLONE 4MG TAB [Concomitant]
     Indication: DRUG USE FOR UNKNOWN INDICATION
     Dosage: 1000 MG, UNK
     Route: 042
     Dates: start: 20060211
  5. CYCLOPHOSPHAMIDE [Concomitant]
     Indication: DRUG USE FOR UNKNOWN INDICATION
     Dosage: 2000 MG/M2, UNK
     Route: 042
     Dates: start: 20060212
  6. CYCLOPHOSPHAMIDE [Concomitant]
     Dosage: 1200 MG/M2, UNK
     Route: 042
     Dates: start: 20060308
  7. MESNA [Concomitant]
     Indication: DRUG USE FOR UNKNOWN INDICATION
     Dosage: 1200 MG/M2, UNK
     Route: 041
     Dates: start: 20060212
  8. MESNA [Concomitant]
     Dosage: 150 MG/M2, UNK
     Route: 042
     Dates: start: 20060308
  9. MESNA [Concomitant]
     Dosage: 1200 MG/M2, UNK
     Route: 042
     Dates: start: 20060308
  10. NEUPOGEN [Concomitant]
     Indication: DRUG USE FOR UNKNOWN INDICATION
     Dosage: 10 A?G/KG, QD
     Route: 058
     Dates: start: 20060216
  11. NEUPOGEN [Concomitant]
     Dosage: 5 A?G/KG, QD
     Route: 058
     Dates: start: 20060315
  12. DEXAMETHASONE [Concomitant]
     Indication: DRUG USE FOR UNKNOWN INDICATION
     Dosage: 8 MG, UNK
     Dates: start: 20060212
  13. FUROSEMIDE [Concomitant]
     Indication: DRUG USE FOR UNKNOWN INDICATION
     Dosage: 20 MG, UNK
     Dates: start: 20060213
  14. ONDANSETRON [Concomitant]
     Indication: DRUG USE FOR UNKNOWN INDICATION
     Dosage: 8 MG, Q12H
     Dates: start: 20060213
  15. LISINOPRIL [Concomitant]
     Indication: DRUG USE FOR UNKNOWN INDICATION
     Dosage: 10 MG, QD
     Dates: start: 20060214
  16. ATORVASTATIN CALCIUM [Concomitant]
     Indication: DRUG USE FOR UNKNOWN INDICATION
     Dosage: 20 MG, QHS
     Dates: start: 20060216
  17. OMEPRAZOLE [Concomitant]
     Indication: DRUG USE FOR UNKNOWN INDICATION
     Dosage: 20 MG, UNK
     Dates: start: 20060216
  18. PREDNISONE [Concomitant]
     Indication: DRUG USE FOR UNKNOWN INDICATION
     Dosage: 20 MG, UNK
     Dates: start: 20060216
  19. VALACYCLOVIR [Concomitant]
     Indication: DRUG USE FOR UNKNOWN INDICATION
     Dosage: 500 MG, UNK
     Dates: start: 20060216
  20. FLUDARABINE PHOSPHATE [Concomitant]
     Indication: DRUG USE FOR UNKNOWN INDICATION
     Dosage: 30 MG/M2, UNK
     Route: 042
     Dates: start: 20060308
  21. SULFAMETHOXAZOLE ET TRIMETHOPRIME [Concomitant]
     Indication: DRUG USE FOR UNKNOWN INDICATION
     Dosage: 1 TABLET, UNK
     Dates: start: 20060308
  22. CASPOFUNGIN [Concomitant]
     Indication: DRUG USE FOR UNKNOWN INDICATION
     Dosage: 70 MG, UNK
     Dates: start: 20060312
  23. CEFTAZIDIME [Concomitant]
     Indication: DRUG USE FOR UNKNOWN INDICATION
     Dosage: 2000 MG, UNK
     Dates: start: 20060314
  24. VANCOMYCIN HCL [Concomitant]
     Indication: DRUG USE FOR UNKNOWN INDICATION
     Dosage: 1000 MG, UNK
     Dates: start: 20060314
  25. HEPARIN [Concomitant]
     Indication: DRUG USE FOR UNKNOWN INDICATION
     Dosage: UNK
     Dates: start: 20060324
  26. EPOETIN ALFA [Concomitant]
     Indication: DRUG USE FOR UNKNOWN INDICATION
     Dosage: 10000 ML, 1/WEEK
     Dates: start: 20060627
  27. PENTAMIDINDIISETHIONAT [Concomitant]
     Indication: DRUG USE FOR UNKNOWN INDICATION
     Dosage: 300 MG, UNK
     Dates: start: 20060802
  28. BROMIDES NOS [Concomitant]
     Indication: DRUG USE FOR UNKNOWN INDICATION
     Dosage: 2.5 MG, PRN
     Dates: start: 20060802
  29. VACCINE [Concomitant]
     Indication: DRUG USE FOR UNKNOWN INDICATION
     Dosage: 0.5 ML, UNK
     Dates: start: 20060926
  30. VACCINE [Concomitant]
     Dosage: 0.5 ML, UNK
     Dates: start: 20070312
  31. VACCINE [Concomitant]
     Dosage: 0.5 ML, UNK
     Dates: start: 20080618
  32. ALENDRONATE SODIUM [Concomitant]
     Indication: DRUG USE FOR UNKNOWN INDICATION
     Dosage: 35 MG, 7/WEEK
     Dates: start: 20060926
  33. LEVOFLOXACIN [Concomitant]
     Indication: DRUG USE FOR UNKNOWN INDICATION
     Dosage: 500 MG, QD
     Dates: start: 20070518

REACTIONS (2)
  - LYMPHOPENIA [None]
  - VACCINATION FAILURE [None]
